FAERS Safety Report 7099932-8 (Version None)
Quarter: 2010Q4

REPORT INFORMATION
  Report Type: 
  Country: None (occurrence: None)
  Receive Date: 20101112
  Receipt Date: 20101102
  Transmission Date: 20110411
  Serious: Yes (Hospitalization)
  Sender: FDA-Public Use
  Company Number: CH-JNJFOC-20101100509

PATIENT
  Age: 21 Year
  Sex: Female

DRUGS (10)
  1. RISPERDAL [Suspect]
     Indication: SCHIZOPHRENIA
     Route: 048
  2. RISPERDAL [Suspect]
     Route: 048
  3. RISPERDAL [Suspect]
     Route: 048
  4. RISPERDAL [Suspect]
     Route: 048
  5. INVEGA [Suspect]
     Indication: SCHIZOPHRENIA
     Route: 048
  6. INVEGA [Suspect]
     Route: 048
  7. TEMESTA [Concomitant]
     Route: 065
  8. ZYPREXA [Concomitant]
     Dosage: 10-30MG
     Route: 048
  9. HALDOL [Concomitant]
     Route: 048
  10. HALDOL [Concomitant]
     Route: 048

REACTIONS (3)
  - BLOOD PROLACTIN INCREASED [None]
  - CHILLS [None]
  - GALACTORRHOEA [None]
